FAERS Safety Report 5126152-6 (Version None)
Quarter: 2006Q3

REPORT INFORMATION
  Report Type: 
  Country: None (occurrence: None)
  Receive Date: 20060823
  Receipt Date: 20060317
  Transmission Date: 20061208
  Serious: Yes (Other)
  Sender: FDA-Public Use
  Company Number: 2006038481

PATIENT
  Sex: Male

DRUGS (1)
  1. NORVASC [Suspect]
     Indication: HYPERTENSION
     Dosage: 5 MG (5 MG,QD INTERVAL: EVERY DAY),ORAL
     Route: 048
     Dates: end: 20050801

REACTIONS (1)
  - ATRIAL FIBRILLATION [None]
